FAERS Safety Report 12172400 (Version 1)
Quarter: 2016Q1

REPORT INFORMATION
  Report Type: Spontaneous
  Country: MX (occurrence: MX)
  Receive Date: 20160311
  Receipt Date: 20160311
  Transmission Date: 20160526
  Serious: Yes (Other)
  Sender: FDA-Public Use
  Company Number: MX-ALEXION PHARMACEUTICALS INC-A201601503

PATIENT
  Sex: Male

DRUGS (5)
  1. DIPHENHYDRAMINE                    /00000402/ [Concomitant]
     Active Substance: DIPHENHYDRAMINE
     Indication: PREMEDICATION
     Dosage: 25 MG, SINGLE
     Route: 042
  2. SOLIRIS [Suspect]
     Active Substance: ECULIZUMAB
     Indication: PAROXYSMAL NOCTURNAL HAEMOGLOBINURIA
     Dosage: 600 MG, QW FOR FOUR WEEKS
     Route: 042
     Dates: start: 2011
  3. HYDROCORTISONE                     /00028602/ [Concomitant]
     Active Substance: HYDROCORTISONE
     Indication: PREMEDICATION
     Dosage: 100 MG, SINGLE
     Route: 042
  4. DEFERASIROX [Concomitant]
     Active Substance: DEFERASIROX
     Indication: PRODUCT USED FOR UNKNOWN INDICATION
     Dosage: 30 MG/KG, QD
     Route: 048
  5. SOLIRIS [Suspect]
     Active Substance: ECULIZUMAB
     Dosage: 900 MG, Q2W
     Route: 042

REACTIONS (2)
  - Autoimmune haemolytic anaemia [Unknown]
  - Drug effect incomplete [Unknown]
